FAERS Safety Report 19997624 (Version 7)
Quarter: 2025Q4

REPORT INFORMATION
  Report Type: Report from Study
  Country: US (occurrence: US)
  Receive Date: 20211026
  Receipt Date: 20251125
  Transmission Date: 20260118
  Serious: Yes (Hospitalization, Other)
  Sender: TAKEDA
  Company Number: US-TAKEDA-2021TUS015086

PATIENT
  Age: 61 Year
  Sex: Female

DRUGS (2)
  1. HUMAN IMMUNOGLOBULIN G [Suspect]
     Active Substance: HUMAN IMMUNOGLOBULIN G
     Indication: Primary immunodeficiency syndrome
     Dosage: UNK
  2. HUMAN IMMUNOGLOBULIN G [Suspect]
     Active Substance: HUMAN IMMUNOGLOBULIN G
     Indication: Immunodeficiency common variable

REACTIONS (10)
  - Haemorrhage [Unknown]
  - Pneumonia [Unknown]
  - Lung disorder [Unknown]
  - Headache [Unknown]
  - Full blood count decreased [Unknown]
  - Bronchitis [Unknown]
  - Illness [Unknown]
  - Product dose omission issue [Unknown]
  - Malaise [Unknown]
  - Dyspnoea [Unknown]
